FAERS Safety Report 6913957-1 (Version None)
Quarter: 2010Q3

REPORT INFORMATION
  Report Type: 
  Country: None (occurrence: None)
  Receive Date: 20100805
  Receipt Date: 20100805
  Transmission Date: 20110219
  Serious: Yes (Death)
  Sender: FDA-Public Use
  Company Number: None

PATIENT
  Age: 32 Year
  Sex: Male
  Weight: 124.7392 kg

DRUGS (1)
  1. METHADONE HCL [Suspect]
     Dosage: ONE TIME USE
     Dates: start: 20090608, end: 20090608

REACTIONS (2)
  - MALAISE [None]
  - SELF-MEDICATION [None]
